FAERS Safety Report 4897983-2 (Version None)
Quarter: 2006Q1

REPORT INFORMATION
  Report Type: 
  Country: None (occurrence: None)
  Receive Date: 20060201
  Receipt Date: 20060130
  Transmission Date: 20060701
  Serious: Yes (Death)
  Sender: FDA-Public Use
  Company Number: BG-SANOFI-SYNTHELABO-F01200600241

PATIENT
  Sex: Male

DRUGS (3)
  1. OXALIPLATIN [Suspect]
     Indication: COLON CANCER
     Route: 042
     Dates: start: 20060111, end: 20060111
  2. CAPECITABINE [Suspect]
     Dosage: MG FOR 2 WEEKS, Q3W
     Route: 048
     Dates: start: 20060111
  3. BEVACIZUMAB [Suspect]
     Route: 042
     Dates: start: 20060111, end: 20060111

REACTIONS (2)
  - DEATH [None]
  - RESPIRATORY ARREST [None]
